FAERS Safety Report 8103179-3 (Version None)
Quarter: 2012Q1

REPORT INFORMATION
  Report Type: 
  Country: None (occurrence: None)
  Receive Date: 20120201
  Receipt Date: 20120119
  Transmission Date: 20120608
  Serious: Yes (Death, Hospitalization)
  Sender: FDA-Public Use
  Company Number: US-OPTIMER-20120008

PATIENT

DRUGS (2)
  1. DIFICID [Suspect]
     Indication: PSEUDOMEMBRANOUS COLITIS
  2. DIFICID [Suspect]
     Indication: CLOSTRIDIAL INFECTION
     Dosage: UNK
     Route: 065
     Dates: start: 20120101

REACTIONS (4)
  - LARGE INTESTINE PERFORATION [None]
  - CARDIAC FAILURE CONGESTIVE [None]
  - FLUID OVERLOAD [None]
  - INFECTIOUS PERITONITIS [None]
